FAERS Safety Report 5454048-9 (Version None)
Quarter: 2007Q3

REPORT INFORMATION
  Report Type: 
  Country: None (occurrence: None)
  Receive Date: 20070917
  Receipt Date: 20070228
  Transmission Date: 20080115
  Serious: Yes (Disabling)
  Sender: FDA-Public Use
  Company Number: US-ASTRAZENECA-2006UW06094

PATIENT
  Age: 694 Month
  Sex: Female
  Weight: 77.3 kg

DRUGS (4)
  1. SEROQUEL [Suspect]
     Indication: DELUSION
     Route: 048
     Dates: start: 20040405
  2. SEROQUEL [Suspect]
     Indication: ANXIETY
     Route: 048
     Dates: start: 20040405
  3. SEROQUEL [Suspect]
     Indication: AFFECTIVE DISORDER
     Route: 048
     Dates: start: 20040405
  4. ZOLOFT [Concomitant]
     Dates: start: 20040401

REACTIONS (1)
  - DIABETES MELLITUS [None]
